FAERS Safety Report 8387136-8 (Version None)
Quarter: 2012Q2

REPORT INFORMATION
  Report Type: 
  Country: None (occurrence: None)
  Receive Date: 20120523
  Receipt Date: 20120523
  Transmission Date: 20120825
  Serious: Yes (Hospitalization)
  Sender: FDA-Public Use
  Company Number: None

PATIENT
  Sex: Female
  Weight: 90.7194 kg

DRUGS (1)
  1. RIVAROXABAN 10MG JANSSEN [Suspect]
     Indication: THROMBOSIS PROPHYLAXIS
     Dosage: 10MG QD ORAL
     Route: 048
     Dates: start: 20120404, end: 20120406

REACTIONS (1)
  - PULMONARY EMBOLISM [None]
